FAERS Safety Report 8007819-9 (Version None)
Quarter: 2011Q4

REPORT INFORMATION
  Report Type: 
  Country: None (occurrence: None)
  Receive Date: 20111227
  Receipt Date: 20101209
  Transmission Date: 20120403
  Serious: No
  Sender: FDA-Public Use
  Company Number: US-ABBOTT-10P-163-0690661-00

PATIENT
  Sex: Male
  Weight: 100.79 kg

DRUGS (2)
  1. CASADEX [Concomitant]
     Indication: PROSTATE CANCER
     Route: 048
  2. LUPRON DEPOT [Suspect]
     Indication: PROSTATE CANCER
     Route: 050
     Dates: start: 20061201, end: 20101208

REACTIONS (2)
  - PROSTATIC SPECIFIC ANTIGEN INCREASED [None]
  - DRUG INEFFECTIVE [None]
